FAERS Safety Report 10022981 (Version 2)
Quarter: 2014Q2

REPORT INFORMATION
  Report Type: Report from Study
  Country: JP (occurrence: JP)
  Receive Date: 20140319
  Receipt Date: 20140423
  Transmission Date: 20141212
  Serious: Yes (Other)
  Sender: FDA-Public Use
  Company Number: JP-ABBVIE-14P-087-1214429-00

PATIENT
  Age: 30 Year
  Sex: Male
  Weight: 53.2 kg

DRUGS (4)
  1. HUMIRA [Suspect]
     Indication: CROHN^S DISEASE
     Route: 058
     Dates: start: 20130605, end: 20130605
  2. HUMIRA [Suspect]
     Dates: start: 20130618, end: 20130618
  3. HUMIRA [Suspect]
     Dates: start: 20130702
  4. MESALAZINE [Concomitant]
     Indication: CROHN^S DISEASE
     Route: 048
     Dates: end: 20130606

REACTIONS (5)
  - Anal fistula [Recovered/Resolved]
  - Dyshidrotic eczema [Recovered/Resolved]
  - Eczema [Recovered/Resolved]
  - Drug ineffective [Unknown]
  - Haemorrhoid operation [Unknown]
